FAERS Safety Report 8799608 (Version 1)
Quarter: 2012Q4

REPORT INFORMATION
  Report Type: 
  Country: DE (occurrence: DE)
  Receive Date: 20120919
  Receipt Date: 20120919
  Transmission Date: 20130627
  Serious: Yes (Other)
  Sender: FDA-Public Use
  Company Number: DE-BAYER-2012-081158

PATIENT
  Age: 37 Year
  Sex: Female
  Weight: 57 kg

DRUGS (2)
  1. MIRENA [Suspect]
     Dosage: 20 mcg/24hr, CONT
     Route: 015
     Dates: start: 20120802, end: 20120807
  2. CYTOTEC [Concomitant]
     Indication: INTRA-UTERINE CONTRACEPTIVE DEVICE INSERTION
     Dosage: 2 DF, UNK
     Route: 048
     Dates: start: 20120802

REACTIONS (17)
  - Vaginal haemorrhage [Recovered/Resolved]
  - Sinobronchitis [Recovered/Resolved]
  - Nasal obstruction [Recovered/Resolved]
  - Depressed mood [Recovered/Resolved]
  - Migraine [Recovered/Resolved]
  - Mucosal dryness [Recovered/Resolved]
  - Device material issue [Recovered/Resolved]
  - Rhinorrhoea [Recovered/Resolved]
  - Restlessness [Recovered/Resolved]
  - Stress [Recovered/Resolved]
  - Asthenia [Recovered/Resolved]
  - Tremor [Recovered/Resolved]
  - Hunger [Recovered/Resolved]
  - Dizziness [Recovered/Resolved]
  - Tearfulness [Recovered/Resolved]
  - Nervousness [Recovered/Resolved]
  - Somnolence [Recovered/Resolved]
